FAERS Safety Report 8260671-9 (Version None)
Quarter: 2012Q2

REPORT INFORMATION
  Report Type: 
  Country: None (occurrence: None)
  Receive Date: 20120405
  Receipt Date: 20120327
  Transmission Date: 20120825
  Serious: Yes (Other)
  Sender: FDA-Public Use
  Company Number: AR-AMGEN-ARGSP2012020057

PATIENT
  Age: 74 Year
  Sex: Female

DRUGS (4)
  1. ENBREL [Suspect]
     Indication: RHEUMATOID ARTHRITIS
     Dosage: 50 MG, WEEKLY
     Route: 058
     Dates: start: 20081226, end: 20120201
  2. MIOPROPAN [Concomitant]
     Dosage: UNK
  3. TRAMADOL HYDROCHLORIDE [Concomitant]
     Dosage: UNK
  4. T4 [Concomitant]
     Dosage: UNK

REACTIONS (1)
  - HERNIA [None]
